FAERS Safety Report 8985912 (Version 1)
Quarter: 2012Q4

REPORT INFORMATION
  Report Type: 
  Country: ES (occurrence: ES)
  Receive Date: 20121226
  Receipt Date: 20121226
  Transmission Date: 20130627
  Serious: Yes (Other)
  Sender: FDA-Public Use
  Company Number: ES-AMGEN-ESPSP2012082711

PATIENT
  Age: 56 Year
  Sex: Female

DRUGS (2)
  1. PROLIA [Suspect]
     Indication: PRODUCT USED FOR UNKNOWN INDICATION
     Dosage: UNK
     Dates: start: 201212
  2. OMEPRAZOLE [Concomitant]

REACTIONS (9)
  - Tachypnoea [Unknown]
  - Palpitations [Unknown]
  - Dyspnoea [Unknown]
  - Bone pain [Unknown]
  - General physical health deterioration [Unknown]
  - Hypertension [Unknown]
  - Feeling abnormal [Unknown]
  - Bed rest [Unknown]
  - Fatigue [Unknown]
